FAERS Safety Report 8203374-9 (Version None)
Quarter: 2012Q1

REPORT INFORMATION
  Report Type: 
  Country: None (occurrence: None)
  Receive Date: 20120312
  Receipt Date: 20120301
  Transmission Date: 20120608
  Serious: Yes (Hospitalization)
  Sender: FDA-Public Use
  Company Number: BR-ASTRAZENECA-2012SE15108

PATIENT
  Age: 49 Year
  Sex: Female
  Weight: 83 kg

DRUGS (14)
  1. NEXIUM [Interacting]
     Route: 048
     Dates: start: 20091101, end: 20120101
  2. CALCIUM [Concomitant]
     Indication: OSTEOPOROSIS
     Route: 048
  3. NEXIUM [Suspect]
     Indication: HIATUS HERNIA
     Route: 048
     Dates: end: 20091101
  4. NEXIUM [Interacting]
     Indication: GASTROOESOPHAGEAL REFLUX DISEASE
     Route: 048
     Dates: end: 20091101
  5. NEXIUM [Interacting]
     Route: 048
     Dates: start: 20120201
  6. PLAVIX [Interacting]
     Indication: MYOCARDIAL INFARCTION
     Route: 065
  7. NEXIUM [Interacting]
     Route: 048
     Dates: start: 20091101, end: 20120101
  8. NEXIUM [Interacting]
     Route: 048
     Dates: start: 20120201
  9. NEXIUM [Interacting]
     Indication: GASTRITIS
     Route: 048
     Dates: end: 20091101
  10. NEXIUM [Interacting]
     Indication: PROPHYLAXIS
     Route: 048
     Dates: end: 20091101
  11. NEXIUM [Interacting]
     Route: 048
     Dates: start: 20120201
  12. NEXIUM [Interacting]
     Route: 048
     Dates: start: 20091101, end: 20120101
  13. NEXIUM [Interacting]
     Route: 048
     Dates: start: 20091101, end: 20120101
  14. NEXIUM [Interacting]
     Route: 048
     Dates: start: 20120201

REACTIONS (3)
  - DRUG INTERACTION [None]
  - MYOCARDIAL INFARCTION [None]
  - INAPPROPRIATE SCHEDULE OF DRUG ADMINISTRATION [None]
